FAERS Safety Report 15879514 (Version 1)
Quarter: 2019Q1

REPORT INFORMATION
  Report Type: Spontaneous
  Country: US (occurrence: US)
  Receive Date: 20190127
  Receipt Date: 20190127
  Transmission Date: 20190417
  Serious: Yes (Life-Threatening, Hospitalization, Other)
  Sender: FDA-Public Use
  Company Number: None

PATIENT
  Age: 41 Year
  Sex: Female
  Weight: 67.5 kg

DRUGS (7)
  1. ADDERALL [Concomitant]
     Active Substance: AMPHETAMINE ASPARTATE\AMPHETAMINE SULFATE\DEXTROAMPHETAMINE SACCHARATE\DEXTROAMPHETAMINE SULFATE
  2. MULTIVITAMIN [Concomitant]
     Active Substance: VITAMINS
  3. LAMICTAL [Concomitant]
     Active Substance: LAMOTRIGINE
  4. BRIVIACT [Suspect]
     Active Substance: BRIVARACETAM
     Indication: SEIZURE
     Dosage: ?          QUANTITY:1 TABLET(S);?
     Route: 048
     Dates: start: 20190124, end: 20190125
  5. PROBIOTICS [Concomitant]
     Active Substance: PROBIOTICS NOS
  6. KLONOPIN [Concomitant]
     Active Substance: CLONAZEPAM
  7. PROZAC [Concomitant]
     Active Substance: FLUOXETINE HYDROCHLORIDE

REACTIONS (6)
  - Crying [None]
  - Somnolence [None]
  - Hallucination, visual [None]
  - Suicidal ideation [None]
  - Dizziness [None]
  - Hallucination, auditory [None]

NARRATIVE: CASE EVENT DATE: 20190124
